FAERS Safety Report 9192159 (Version 2)
Quarter: 2013Q2

REPORT INFORMATION
  Report Type: Spontaneous
  Country: US (occurrence: None)
  Receive Date: 20120703
  Receipt Date: 20121031
  Transmission Date: 20140414
  Serious: Yes (Other)
  Sender: FDA-Public Use
  Company Number: PHEH2012US007278

PATIENT
  Age: 40 Year
  Sex: Female

DRUGS (2)
  1. GILENYA [Suspect]
     Indication: MULTIPLE SCLEROSIS
     Route: 048
     Dates: start: 201202
  2. MOTRIN (IBUPROFEN) [Concomitant]

REACTIONS (4)
  - Abdominal pain upper [None]
  - Acne [None]
  - Weight increased [None]
  - Decreased interest [None]
